FAERS Safety Report 16857687 (Version 1)
Quarter: 2019Q3

REPORT INFORMATION
  Report Type: Spontaneous
  Country: NL (occurrence: ES)
  Receive Date: 20190926
  Receipt Date: 20190926
  Transmission Date: 20191005
  Serious: Yes (Hospitalization, Other)
  Sender: FDA-Public Use
  Company Number: ES-FRESENIUS KABI-FK201910347

PATIENT
  Age: 62 Year
  Sex: Male

DRUGS (9)
  1. VINCRISTINE [Suspect]
     Active Substance: VINCRISTINE
     Indication: MANTLE CELL LYMPHOMA STAGE IV
     Route: 065
     Dates: start: 201508
  2. POSACONAZOLE [Suspect]
     Active Substance: POSACONAZOLE
     Indication: PRODUCT USED FOR UNKNOWN INDICATION
     Route: 065
  3. OXALIPLATIN (MANUFACTURER UNKNOWN) [Suspect]
     Active Substance: OXALIPLATIN
     Indication: MANTLE CELL LYMPHOMA STAGE IV
     Route: 065
  4. RITUXIMAB. [Suspect]
     Active Substance: RITUXIMAB
     Indication: MANTLE CELL LYMPHOMA STAGE IV
     Route: 065
  5. IBRUTINIB [Suspect]
     Active Substance: IBRUTINIB
     Indication: MANTLE CELL LYMPHOMA STAGE IV
     Route: 065
     Dates: start: 201508
  6. GEMCITABINE. [Suspect]
     Active Substance: GEMCITABINE
     Indication: MANTLE CELL LYMPHOMA STAGE IV
     Dosage: UNK
     Route: 065
     Dates: start: 201508
  7. DOXORUBICIN [Suspect]
     Active Substance: DOXORUBICIN
     Indication: MANTLE CELL LYMPHOMA STAGE IV
     Route: 065
     Dates: start: 201508
  8. CYCLOPHOSPHAMIDE. [Suspect]
     Active Substance: CYCLOPHOSPHAMIDE
     Indication: MANTLE CELL LYMPHOMA STAGE IV
     Route: 065
     Dates: start: 201508
  9. DEXAMETHASONE. [Suspect]
     Active Substance: DEXAMETHASONE
     Indication: MANTLE CELL LYMPHOMA STAGE IV
     Route: 065
     Dates: start: 201508

REACTIONS (15)
  - Pleural effusion [Unknown]
  - Mantle cell lymphoma recurrent [Unknown]
  - Clostridium difficile infection [Unknown]
  - Pulmonary mass [Unknown]
  - Pericardial effusion [Unknown]
  - Rectal haemorrhage [Unknown]
  - Hepatotoxicity [Unknown]
  - Enterobacter bacteraemia [Unknown]
  - Cytomegalovirus infection [Unknown]
  - Escherichia bacteraemia [Unknown]
  - Malnutrition [Unknown]
  - Central nervous system lesion [Unknown]
  - Intracranial mass [Unknown]
  - Graft versus host disease in gastrointestinal tract [Unknown]
  - Thrombocytopenia [Unknown]

NARRATIVE: CASE EVENT DATE: 2016
